FAERS Safety Report 5252392-1 (Version None)
Quarter: 2007Q1

REPORT INFORMATION
  Report Type: 
  Country: None (occurrence: None)
  Receive Date: 20070301
  Receipt Date: 20061031
  Transmission Date: 20070707
  Serious: No
  Sender: FDA-Public Use
  Company Number: US-BRISTOL-MYERS SQUIBB COMPANY-13561360

PATIENT
  Age: 81 Year
  Sex: Female
  Weight: 63 kg

DRUGS (2)
  1. CARBOPLATIN [Suspect]
     Indication: OVARIAN CANCER
     Route: 042
  2. TAXOL [Suspect]
     Indication: OVARIAN CANCER
     Route: 042

REACTIONS (2)
  - NEUROPATHY [None]
  - TINNITUS [None]
